FAERS Safety Report 18625110 (Version 1)
Quarter: 2020Q4

REPORT INFORMATION
  Report Type: Report from Study
  Country: None (occurrence: PR)
  Receive Date: 20201217
  Receipt Date: 20201217
  Transmission Date: 20210114
  Serious: Yes (Other)
  Sender: FDA-Public Use
  Company Number: PR-ABBVIE-20K-131-3694343-00

PATIENT
  Sex: Male

DRUGS (2)
  1. VENCLEXTA [Suspect]
     Active Substance: VENETOCLAX
     Indication: CHRONIC LYMPHOCYTIC LEUKAEMIA
     Route: 048
     Dates: start: 20190530
  2. VENCLEXTA [Suspect]
     Active Substance: VENETOCLAX
     Route: 048

REACTIONS (2)
  - Skin cancer [Unknown]
  - Oral disorder [Unknown]
